FAERS Safety Report 7005232-4 (Version None)
Quarter: 2010Q3

REPORT INFORMATION
  Report Type: 
  Country: None (occurrence: None)
  Receive Date: 20100920
  Receipt Date: 20100920
  Transmission Date: 20110219
  Serious: Yes (Death, Life-Threatening, Hospitalization, Disabling, Congenital Anomaly, Other)
  Sender: FDA-Public Use
  Company Number: None

PATIENT
  Age: 28 Year
  Sex: Female
  Weight: 70.3075 kg

DRUGS (3)
  1. MIRENA [Suspect]
     Indication: CONTRACEPTION
     Dates: start: 20100722, end: 20100920
  2. VITAMIN AND MINERAL PRENATAL SUPPLEMENT W/ FOLIC ACID CAP [Concomitant]
  3. FENUGREEK HERBAL SUPPLEMENT [Concomitant]

REACTIONS (7)
  - DEPRESSION [None]
  - FATIGUE [None]
  - HEADACHE [None]
  - MEDICAL DEVICE COMPLICATION [None]
  - PARAESTHESIA [None]
  - VISION BLURRED [None]
  - VULVOVAGINAL BURNING SENSATION [None]
